FAERS Safety Report 19834376 (Version 1)
Quarter: 2021Q3

REPORT INFORMATION
  Report Type: Spontaneous
  Country: US (occurrence: US)
  Receive Date: 20210915
  Receipt Date: 20210915
  Transmission Date: 20211014
  Serious: No
  Sender: FDA-Public Use
  Company Number: US-UCBSA-2021030571

PATIENT
  Age: 9 Year
  Sex: Female

DRUGS (2)
  1. NAYZILAM [Suspect]
     Active Substance: MIDAZOLAM
     Indication: EPILEPSY
     Dosage: UNK
  2. DIAZEPAM. [Concomitant]
     Active Substance: DIAZEPAM
     Indication: EPILEPSY
     Dosage: UNK

REACTIONS (1)
  - No adverse event [Unknown]
